FAERS Safety Report 20804656 (Version 1)
Quarter: 2022Q2

REPORT INFORMATION
  Report Type: Spontaneous
  Country: US (occurrence: US)
  Receive Date: 20220509
  Receipt Date: 20220509
  Transmission Date: 20220721
  Serious: Yes (Death)
  Sender: FDA-Public Use
  Company Number: US-PFIZER INC-2021560718

PATIENT
  Age: 81 Year
  Sex: Female
  Weight: 90.72 kg

DRUGS (1)
  1. BRAFTOVI [Suspect]
     Active Substance: ENCORAFENIB
     Indication: Neoplasm malignant
     Dosage: 75 MG, 2X/DAY
     Route: 048
     Dates: start: 2021

REACTIONS (1)
  - Death [Fatal]
